FAERS Safety Report 8616782-9 (Version None)
Quarter: 2012Q3

REPORT INFORMATION
  Report Type: 
  Country: None (occurrence: None)
  Receive Date: 20120823
  Receipt Date: 20120807
  Transmission Date: 20120928
  Serious: Yes (Hospitalization)
  Sender: FDA-Public Use
  Company Number: US-009507513-1112USA03234

PATIENT

DRUGS (13)
  1. TYLENOL [Concomitant]
     Indication: PAIN
     Dosage: 500 MG, PRN
     Route: 048
     Dates: start: 20110101
  2. ZOFRAN [Concomitant]
     Indication: PROPHYLAXIS OF NAUSEA AND VOMITING
     Dosage: 4 MG, ONCE
     Route: 042
     Dates: start: 20110615, end: 20110615
  3. MK-0646 [Concomitant]
     Indication: BREAST CANCER
     Dosage: DAY 1 AND DAY 8
     Route: 042
     Dates: start: 20110615, end: 20110615
  4. HYDROCHLOROTHIAZIDE [Concomitant]
     Indication: HYPERTENSION
     Dosage: 25 MG, QD
     Route: 048
     Dates: start: 20110101
  5. PRAVASTATIN SODIUM [Concomitant]
     Indication: HYPERCHOLESTEROLAEMIA
     Dosage: 20 MG, QD
     Route: 048
     Dates: start: 20110101
  6. LORATADINE [Concomitant]
     Indication: HYPERSENSITIVITY
     Dosage: 10 MG, QD
     Route: 048
     Dates: start: 20110515
  7. ANCEF [Concomitant]
     Indication: INFECTION PROPHYLAXIS
     Dosage: 1 G, ONCE
     Route: 042
     Dates: start: 20110615, end: 20110615
  8. LIDOCAINE [Concomitant]
     Indication: PREMEDICATION
     Dosage: 1 %, ONCE
     Route: 042
     Dates: start: 20110615, end: 20110615
  9. DECADRON [Suspect]
     Indication: PREMEDICATION
     Dosage: 18 MG, ONCE
     Route: 048
     Dates: start: 20110630, end: 20110630
  10. DECADRON [Suspect]
     Dosage: 18 MG, QD
     Route: 048
     Dates: start: 20110701, end: 20110703
  11. VERSED [Concomitant]
     Indication: PREMEDICATION
     Dosage: 3 MG, ONCE
     Route: 042
     Dates: start: 20100615, end: 20110615
  12. MK-0646 [Concomitant]
     Dosage: DAY 1 AND DAY 8
     Route: 042
     Dates: start: 20110622, end: 20110622
  13. FENTANYL [Concomitant]
     Indication: PAIN PROPHYLAXIS
     Dosage: 75 MG, ONCE
     Route: 042
     Dates: start: 20110615, end: 20110615

REACTIONS (1)
  - DIABETES MELLITUS [None]
